FAERS Safety Report 4657942-1 (Version None)
Quarter: 2005Q2

REPORT INFORMATION
  Report Type: 
  Country: None (occurrence: None)
  Receive Date: 20050510
  Receipt Date: 20050502
  Transmission Date: 20051028
  Serious: Yes (Disabling)
  Sender: FDA-Public Use
  Company Number: 2005AC00691

PATIENT
  Age: 36 Year
  Sex: Female

DRUGS (9)
  1. QUETIAPINE [Suspect]
     Route: 048
  2. QUETIAPINE [Suspect]
     Route: 048
  3. QUETIAPINE [Suspect]
     Route: 048
  4. QUETIAPINE [Suspect]
     Route: 048
  5. QUETIAPINE [Suspect]
     Dosage: TAPER OF 12.5MG EVERY 5 DAYS
     Route: 048
  6. LAMOTRIGINE [Concomitant]
     Indication: BIPOLAR DISORDER
  7. LAMOTRIGINE [Concomitant]
     Indication: AFFECTIVE DISORDER
  8. CLONAZEPAM [Concomitant]
     Indication: BIPOLAR DISORDER
  9. CLONAZEPAM [Concomitant]
     Indication: AFFECTIVE DISORDER

REACTIONS (6)
  - ANXIETY [None]
  - DIZZINESS [None]
  - DRUG WITHDRAWAL SYNDROME [None]
  - HEADACHE [None]
  - NAUSEA [None]
  - WEIGHT INCREASED [None]
